FAERS Safety Report 8901015 (Version 3)
Quarter: 2012Q4

REPORT INFORMATION
  Report Type: 
  Country: US (occurrence: US)
  Receive Date: 20121109
  Receipt Date: 20121231
  Transmission Date: 20130627
  Serious: Yes (Hospitalization)
  Sender: FDA-Public Use
  Company Number: US-BRISTOL-MYERS SQUIBB COMPANY-17086067

PATIENT
  Age: 63 Year
  Sex: Female

DRUGS (5)
  1. GLUCOPHAGE [Suspect]
  2. AVAPRO [Suspect]
  3. BENTYL [Concomitant]
  4. VITAMINS [Concomitant]
  5. GLUCOTROL XL [Concomitant]

REACTIONS (3)
  - Nephrolithiasis [Recovered/Resolved]
  - Haemorrhage [Unknown]
  - Urinary tract infection [Unknown]
